FAERS Safety Report 23923872 (Version 2)
Quarter: 2024Q3

REPORT INFORMATION
  Report Type: Spontaneous
  Country: RU (occurrence: CA)
  Receive Date: 20240531
  Receipt Date: 20240701
  Transmission Date: 20241017
  Serious: Yes (Hospitalization, Disabling, Other)
  Sender: SANOFI AVENTIS
  Company Number: RU-SA-SAC20240528000196

PATIENT
  Age: 44 Year
  Sex: Female
  Weight: 97 kg

DRUGS (1)
  1. ARAVA [Suspect]
     Active Substance: LEFLUNOMIDE
     Indication: Rheumatoid arthritis
     Dosage: 20 MG
     Route: 048

REACTIONS (1)
  - Exposure during pregnancy [Unknown]
